FAERS Safety Report 8376258-3 (Version None)
Quarter: 2012Q1

REPORT INFORMATION
  Report Type: 
  Country: None (occurrence: None)
  Receive Date: 20120323
  Receipt Date: 20110707
  Transmission Date: 20120608
  Serious: Yes (Hospitalization, Other)
  Sender: FDA-Public Use
  Company Number: 163-21880-11070586

PATIENT
  Age: 76 Year
  Sex: Female

DRUGS (7)
  1. MELPHALAN HYDROCHLORIDE [Suspect]
     Indication: MULTIPLE MYELOMA
     Dates: start: 20110526
  2. LISINOPRIL [Concomitant]
  3. CARVEDILOL [Concomitant]
  4. VELCADE [Suspect]
     Indication: MULTIPLE MYELOMA
     Dates: start: 20110526
  5. REVLIMID [Suspect]
     Indication: MULTIPLE MYELOMA
     Dosage: 10 MG, DAILY X 21 DAYS, PO
     Route: 048
     Dates: start: 20110526, end: 20110606
  6. WARFARIN SODIUM [Concomitant]
  7. DEXAMETHASONE [Suspect]
     Indication: MULTIPLE MYELOMA
     Dates: start: 20110526

REACTIONS (10)
  - EAR PAIN [None]
  - BLEPHARITIS [None]
  - ACUTE SINUSITIS [None]
  - OTITIS MEDIA [None]
  - DIARRHOEA [None]
  - OEDEMA PERIPHERAL [None]
  - WEIGHT DECREASED [None]
  - TYMPANIC MEMBRANE PERFORATION [None]
  - CONFUSIONAL STATE [None]
  - OCULAR HYPERAEMIA [None]
